FAERS Safety Report 8431196-2 (Version None)
Quarter: 2012Q2

REPORT INFORMATION
  Report Type: 
  Country: None (occurrence: None)
  Receive Date: 20120612
  Receipt Date: 20120608
  Transmission Date: 20120825
  Serious: Yes (Hospitalization)
  Sender: FDA-Public Use
  Company Number: PHHO2012ES008722

PATIENT
  Sex: Male
  Weight: 27 kg

DRUGS (2)
  1. ALBUTEROL [Suspect]
     Indication: BRONCHITIS
     Dosage: METERED DOSE INHALER TID
     Dates: start: 20120520, end: 20120524
  2. AFINITOR [Suspect]
     Indication: TUBEROUS SCLEROSIS
     Dosage: 2.5 MG, QD
     Route: 048
     Dates: start: 20120212

REACTIONS (1)
  - EXTRASYSTOLES [None]
